FAERS Safety Report 18700381 (Version 1)
Quarter: 2021Q1

REPORT INFORMATION
  Report Type: Spontaneous
  Country: SE (occurrence: SE)
  Receive Date: 20210105
  Receipt Date: 20210105
  Transmission Date: 20210419
  Serious: Yes (Other)
  Sender: FDA-Public Use
  Company Number: SE-TEVA-2020-SE-1864164

PATIENT
  Age: 27 Year
  Sex: Male
  Weight: 69 kg

DRUGS (1)
  1. PAROXETINE. [Suspect]
     Active Substance: PAROXETINE
     Indication: DEPRESSION
     Dosage: 20 MILLIGRAM DAILY;
     Dates: start: 20200101

REACTIONS (14)
  - Aggression [Recovered/Resolved]
  - Anxiety [Recovered/Resolved]
  - Confusional state [Recovered/Resolved]
  - Dizziness [Recovered/Resolved]
  - Suicidal ideation [Recovered/Resolved]
  - Headache [Recovered/Resolved]
  - Bruxism [Recovered/Resolved]
  - Disturbance in attention [Recovered/Resolved]
  - Panic attack [Recovered/Resolved]
  - Hallucination [Recovered/Resolved]
  - Mania [Recovered/Resolved]
  - Abnormal dreams [Recovered/Resolved]
  - Insomnia [Recovered/Resolved]
  - Akathisia [Recovered/Resolved]

NARRATIVE: CASE EVENT DATE: 202001
